FAERS Safety Report 9231380 (Version 1)
Quarter: 2013Q2

REPORT INFORMATION
  Report Type: Spontaneous
  Country: US (occurrence: US)
  Receive Date: 20130415
  Receipt Date: 20130415
  Transmission Date: 20140414
  Serious: Yes (Hospitalization, Other)
  Sender: FDA-Public Use
  Company Number: US-BAYER-2013-045091

PATIENT
  Age: 30 Year
  Sex: Female

DRUGS (3)
  1. YAZ [Suspect]
     Indication: DYSMENORRHOEA
     Dosage: UNK
     Dates: start: 2007, end: 2011
  2. YASMIN [Suspect]
     Dosage: UNK
     Dates: start: 2007, end: 2011
  3. MULTIVITAMINS [Concomitant]

REACTIONS (12)
  - Deep vein thrombosis [None]
  - Thrombosis [None]
  - Subclavian vein thrombosis [Recovering/Resolving]
  - Axillary vein thrombosis [Recovering/Resolving]
  - Thrombophlebitis superficial [Recovering/Resolving]
  - Injury [None]
  - Pain [None]
  - Emotional distress [None]
  - Abdominal pain [None]
  - General physical health deterioration [None]
  - Anxiety [None]
  - Pain [None]
